FAERS Safety Report 4325392-3 (Version None)
Quarter: 2004Q1

REPORT INFORMATION
  Report Type: 
  Country: None (occurrence: None)
  Receive Date: 20040324
  Receipt Date: 20040315
  Transmission Date: 20041129
  Serious: No
  Sender: FDA-Public Use
  Company Number: 04P-163-0251145-00

PATIENT

DRUGS (1)
  1. KALETRA [Suspect]

REACTIONS (3)
  - FOETAL CARDIAC DISORDER [None]
  - MATERNAL DRUGS AFFECTING FOETUS [None]
  - ULTRASOUND ANTENATAL SCREEN ABNORMAL [None]
